FAERS Safety Report 13963811 (Version 1)
Quarter: 2017Q3

REPORT INFORMATION
  Report Type: Report from Study
  Country: BR (occurrence: BR)
  Receive Date: 20170913
  Receipt Date: 20170913
  Transmission Date: 20171128
  Serious: Yes (Other)
  Sender: FDA-Public Use
  Company Number: BR-ROCHE-1960258

PATIENT
  Sex: Female
  Weight: 76 kg

DRUGS (1)
  1. ACTEMRA [Suspect]
     Active Substance: TOCILIZUMAB
     Indication: RHEUMATOID ARTHRITIS
     Dosage: 8 AMPOULES?DATE OF THE MOST RECENT INFUSION: 16/JUN/2017
     Route: 042

REACTIONS (1)
  - Inflammation [Recovered/Resolved]
